FAERS Safety Report 18917851 (Version 1)
Quarter: 2021Q1

REPORT INFORMATION
  Report Type: Spontaneous
  Country: ES (occurrence: ES)
  Receive Date: 20210219
  Receipt Date: 20210219
  Transmission Date: 20210420
  Serious: Yes (Other)
  Sender: FDA-Public Use
  Company Number: ES-BAUSCH-BL-2021-005472

PATIENT
  Sex: Female
  Weight: 56 kg

DRUGS (1)
  1. OFLOXACINO [Suspect]
     Active Substance: OFLOXACIN
     Indication: BRONCHITIS
     Route: 065
     Dates: start: 20210121

REACTIONS (1)
  - Pseudomembranous colitis [Recovering/Resolving]

NARRATIVE: CASE EVENT DATE: 20210122
